FAERS Safety Report 4758528-0 (Version None)
Quarter: 2005Q3

REPORT INFORMATION
  Report Type: 
  Country: None (occurrence: None)
  Receive Date: 20050830
  Receipt Date: 20050830
  Transmission Date: 20060218
  Serious: Yes (Hospitalization)
  Sender: FDA-Public Use
  Company Number: None

PATIENT
  Age: 71 Year
  Sex: Male

DRUGS (6)
  1. CITUXIMAB [Suspect]
     Indication: OESOPHAGEAL CARCINOMA
     Dosage: 250 MG/M2 Q W X 6 IV
     Route: 042
     Dates: start: 20050720
  2. CITUXIMAB [Suspect]
     Indication: OESOPHAGEAL CARCINOMA
     Dosage: 250 MG/M2 Q W X 6 IV
     Route: 042
     Dates: start: 20050725
  3. CITUXIMAB [Suspect]
     Indication: OESOPHAGEAL CARCINOMA
     Dosage: 250 MG/M2 Q W X 6 IV
     Route: 042
     Dates: start: 20050804
  4. CITUXIMAB [Suspect]
     Indication: OESOPHAGEAL CARCINOMA
     Dosage: 250 MG/M2 Q W X 6 IV
     Route: 042
     Dates: start: 20050811
  5. TAXOL [Suspect]
     Dosage: 50 MG /M2 Q W X 6 IV
     Route: 042
  6. CARBOPLATIN [Suspect]
     Dosage: AUC 2 Q WK X 6 IV
     Route: 042

REACTIONS (6)
  - BLOOD PRESSURE DIASTOLIC DECREASED [None]
  - CELLULITIS [None]
  - DIZZINESS [None]
  - NAUSEA [None]
  - PITTING OEDEMA [None]
  - RASH [None]
